FAERS Safety Report 8157820-X (Version None)
Quarter: 2012Q1

REPORT INFORMATION
  Report Type: 
  Country: None (occurrence: None)
  Receive Date: 20120222
  Receipt Date: 20120213
  Transmission Date: 20120608
  Serious: Yes (Hospitalization)
  Sender: FDA-Public Use
  Company Number: US-ASTRAZENECA-2012SE02866

PATIENT
  Age: 56 Year
  Sex: Female

DRUGS (3)
  1. FLORGEL [Concomitant]
  2. PULMICORT FLEXHALER [Suspect]
     Route: 055
  3. PREDNISONE [Concomitant]

REACTIONS (10)
  - NEUROPATHY PERIPHERAL [None]
  - ECZEMA [None]
  - NEPHROLITHIASIS [None]
  - FIBROMYALGIA [None]
  - HYPERTENSION [None]
  - MALAISE [None]
  - DEAFNESS [None]
  - ASTHMA [None]
  - DIABETES MELLITUS [None]
  - CHRONIC SINUSITIS [None]
